FAERS Safety Report 9852384 (Version 1)
Quarter: 2014Q1

REPORT INFORMATION
  Report Type: Spontaneous
  Country: US (occurrence: None)
  Receive Date: 20140127
  Receipt Date: 20140127
  Transmission Date: 20141002
  Serious: Yes (Death)
  Sender: FDA-Public Use
  Company Number: 2014AP000501

PATIENT
  Age: 56 Year
  Sex: Male

DRUGS (4)
  1. CITALOPRAM HYDROBROMIDE [Suspect]
     Dosage: ; PO
     Route: 048
  2. NORTRIPTYLINE [Suspect]
     Dosage: ; PO
     Route: 048
  3. PROMETHAZINE [Suspect]
     Dosage: ; PO
     Route: 048
  4. METOPROLOL [Suspect]
     Dosage: ; PO
     Route: 048

REACTIONS (1)
  - Death [None]
